FAERS Safety Report 8314813-7 (Version None)
Quarter: 2012Q2

REPORT INFORMATION
  Report Type: 
  Country: None (occurrence: None)
  Receive Date: 20120426
  Receipt Date: 20120420
  Transmission Date: 20120825
  Serious: Yes (Other)
  Sender: FDA-Public Use
  Company Number: US-BAYER-2012-039294

PATIENT
  Age: 80 Year
  Sex: Male
  Weight: 107 kg

DRUGS (2)
  1. ALEVE (CAPLET) [Suspect]
     Indication: ANALGESIC THERAPY
     Dosage: 1 U, PRN
     Route: 048
     Dates: start: 20120419
  2. ANTIHYPERTENSIVES [Concomitant]

REACTIONS (1)
  - BLOOD URINE PRESENT [None]
